FAERS Safety Report 6645600-3 (Version None)
Quarter: 2010Q1

REPORT INFORMATION
  Report Type: 
  Country: None (occurrence: None)
  Receive Date: 20100323
  Receipt Date: 20100308
  Transmission Date: 20100710
  Serious: Yes (Hospitalization)
  Sender: FDA-Public Use
  Company Number: US-CELGENEUS-163-21880-10030846

PATIENT
  Sex: Female

DRUGS (2)
  1. REVLIMID [Suspect]
     Indication: MULTIPLE MYELOMA
     Route: 048
     Dates: start: 20081201
  2. REVLIMID [Suspect]
     Dosage: 5-25 MG
     Route: 048
     Dates: start: 20080826, end: 20081201

REACTIONS (2)
  - AORTIC VALVE INCOMPETENCE [None]
  - CARDIAC FAILURE [None]
